FAERS Safety Report 14121024 (Version 3)
Quarter: 2017Q4

REPORT INFORMATION
  Report Type: Spontaneous
  Country: US (occurrence: US)
  Receive Date: 20171024
  Receipt Date: 20171127
  Transmission Date: 20180321
  Serious: Yes (Disabling)
  Sender: FDA-Public Use
  Company Number: US-LPDUSPRD-20171415

PATIENT
  Age: 48 Year
  Sex: Male

DRUGS (5)
  1. TESTOSTERONE CIPIRONATE [Concomitant]
     Dosage: 200 MG/ML
     Route: 065
  2. SYNTHROID [Concomitant]
     Active Substance: LEVOTHYROXINE SODIUM
     Dosage: 200 MCG
     Route: 065
  3. BETAMETHASONE SODIUM PHOSPHATE AND BETAMETHASONE ACETATE INJ SUSP, USP [Suspect]
     Active Substance: BETAMETHASONE ACETATE\BETAMETHASONE SODIUM PHOSPHATE
     Dosage: 0.5 ML
     Route: 014
     Dates: start: 20170901, end: 20170901
  4. ATORVASTATIN [Concomitant]
     Active Substance: ATORVASTATIN
     Dosage: 20 MG
     Route: 065
  5. LIDOCAINE 2% [Suspect]
     Active Substance: LIDOCAINE
     Dosage: 1 ML
     Route: 065
     Dates: start: 20170901

REACTIONS (6)
  - Abscess limb [Unknown]
  - Off label use [Unknown]
  - Mycobacterium chelonae infection [Unknown]
  - Scar [Recovering/Resolving]
  - Dermal cyst [Unknown]
  - Inflammation [Recovering/Resolving]

NARRATIVE: CASE EVENT DATE: 2017
